FAERS Safety Report 4551801-0 (Version None)
Quarter: 2005Q1

REPORT INFORMATION
  Report Type: 
  Country: None (occurrence: None)
  Receive Date: 20050111
  Receipt Date: 20050105
  Transmission Date: 20050727
  Serious: Yes (Disabling)
  Sender: FDA-Public Use
  Company Number: K200500009

PATIENT
  Age: 59 Year

DRUGS (2)
  1. ALTACE [Suspect]
     Dosage: 10 MG QD ORAL
     Route: 048
     Dates: start: 20020101
  2. BENDROFLUAZIDE               (BNEDROFLUMETHIAZIDE) [Concomitant]

REACTIONS (2)
  - DERMATITIS ALLERGIC [None]
  - INFLUENZA LIKE ILLNESS [None]
